FAERS Safety Report 9034698 (Version 1)
Quarter: 2013Q1

REPORT INFORMATION
  Report Type: Spontaneous
  Country: US (occurrence: None)
  Receive Date: 20130116
  Receipt Date: 20130116
  Transmission Date: 20140127
  Serious: No
  Sender: FDA-Public Use
  Company Number: None

PATIENT
  Age: 54 Year
  Sex: Male
  Weight: 90.9 kg

DRUGS (1)
  1. HYDROCODONE-CHLORPHENIRAM [Suspect]
     Indication: PERTUSSIS
     Dosage: 5 ML  TWICE DAILY  ORAL
     Route: 048
     Dates: start: 20121226, end: 20121231

REACTIONS (2)
  - Cough [None]
  - Drug ineffective [None]
